FAERS Safety Report 6180052-1 (Version None)
Quarter: 2009Q2

REPORT INFORMATION
  Report Type: 
  Country: None (occurrence: None)
  Receive Date: 20090505
  Receipt Date: 20090428
  Transmission Date: 20091009
  Serious: Yes (Hospitalization, Disabling)
  Sender: FDA-Public Use
  Company Number: FR-AMGEN-UK285869

PATIENT
  Sex: Female
  Weight: 59 kg

DRUGS (7)
  1. VECTIBIX [Suspect]
     Indication: COLORECTAL CANCER
     Route: 042
     Dates: start: 20080429, end: 20080523
  2. TRIMEBUTINE [Concomitant]
     Dates: start: 20080604
  3. DURAGESIC-100 [Concomitant]
     Route: 065
     Dates: start: 20080604
  4. ACTISKENAN [Concomitant]
  5. FORLAX [Concomitant]
     Route: 065
     Dates: start: 20080604
  6. ARIXTRA [Concomitant]
     Route: 065
     Dates: start: 20080604
  7. NUTRITIONAL SUPPLEMENT [Concomitant]
     Route: 051

REACTIONS (16)
  - AMNESIA [None]
  - APHASIA [None]
  - BALANCE DISORDER [None]
  - CEREBELLAR SYNDROME [None]
  - CHOLESTASIS [None]
  - CLONUS [None]
  - CONFUSIONAL STATE [None]
  - DYSKINESIA [None]
  - GRAND MAL CONVULSION [None]
  - HEPATOCELLULAR INJURY [None]
  - LIVER FUNCTION TEST ABNORMAL [None]
  - RENAL FAILURE [None]
  - RESTLESSNESS [None]
  - SOMNOLENCE [None]
  - URINARY INCONTINENCE [None]
  - URINARY TRACT INFECTION [None]
